FAERS Safety Report 4534823-5 (Version None)
Quarter: 2004Q4

REPORT INFORMATION
  Report Type: 
  Country: None (occurrence: None)
  Receive Date: 20041222
  Receipt Date: 20040330
  Transmission Date: 20050328
  Serious: No
  Sender: FDA-Public Use
  Company Number: US-BRISTOL-MYERS SQUIBB COMPANY-12547303

PATIENT
  Age: 66 Year
  Sex: Female
  Weight: 101 kg

DRUGS (19)
  1. PRAVACHOL [Suspect]
     Indication: HYPERCHOLESTEROLAEMIA
     Route: 048
     Dates: start: 20040325
  2. ZETIA [Suspect]
  3. LOPRESSOR [Concomitant]
  4. IMDUR [Concomitant]
  5. SOMA [Concomitant]
  6. NEURONTIN [Concomitant]
  7. BEXTRA [Concomitant]
  8. CLOBETASOL [Concomitant]
     Route: 061
  9. DOVONEX [Concomitant]
  10. PROZAC [Concomitant]
  11. MOTRIN [Concomitant]
  12. CALCIUM [Concomitant]
  13. MULTI-VITAMIN [Concomitant]
  14. BETA CAROTENE [Concomitant]
  15. VITAMIN B6 [Concomitant]
  16. VITAMIN B-12 [Concomitant]
  17. FOLIC ACID [Concomitant]
  18. CHONDROITIN + GLUCOSAMINE [Concomitant]
  19. MELATONIN [Concomitant]

REACTIONS (1)
  - INSOMNIA [None]
